FAERS Safety Report 5340991-8 (Version None)
Quarter: 2007Q2

REPORT INFORMATION
  Report Type: 
  Country: None (occurrence: None)
  Receive Date: 20070405
  Receipt Date: 20070123
  Transmission Date: 20071010
  Serious: No
  Sender: FDA-Public Use
  Company Number: US200701004661

PATIENT
  Age: 55 Year
  Sex: Male

DRUGS (2)
  1. CYMBALTA [Suspect]
     Indication: NEUROPATHY PERIPHERAL
     Dosage: 60 MG, DAILY (1/D),
     Dates: start: 20070111, end: 20070122
  2. AVALIDE [Concomitant]

REACTIONS (6)
  - ANXIETY [None]
  - COLD SWEAT [None]
  - ERECTILE DYSFUNCTION [None]
  - MOOD ALTERED [None]
  - NERVOUSNESS [None]
  - PARAESTHESIA [None]
